FAERS Safety Report 7277832-8 (Version None)
Quarter: 2011Q1

REPORT INFORMATION
  Report Type: 
  Country: None (occurrence: None)
  Receive Date: 20110207
  Receipt Date: 20110125
  Transmission Date: 20110831
  Serious: Yes (Other)
  Sender: FDA-Public Use
  Company Number: US-ACTELION-A-US2010-40962

PATIENT

DRUGS (1)
  1. TRACLEER [Suspect]
     Indication: PULMONARY ARTERIAL HYPERTENSION
     Dosage: UNK
     Route: 048
     Dates: start: 20100901

REACTIONS (6)
  - NASAL CONGESTION [None]
  - MIGRAINE [None]
  - HYPOAESTHESIA FACIAL [None]
  - HYPOAESTHESIA [None]
  - DIZZINESS [None]
  - NASOPHARYNGITIS [None]
